FAERS Safety Report 4517907-7 (Version None)
Quarter: 2004Q4

REPORT INFORMATION
  Report Type: 
  Country: None (occurrence: None)
  Receive Date: 20041130
  Receipt Date: 20041110
  Transmission Date: 20050328
  Serious: Yes (Death)
  Sender: FDA-Public Use
  Company Number: AU_041108163

PATIENT
  Age: 35 Year
  Sex: Female

DRUGS (7)
  1. ZYPREXA [Suspect]
     Dosage: 10 MG OTHER
     Dates: end: 20040803
  2. LORAZEPAM [Concomitant]
  3. QUETIAPINE [Concomitant]
  4. LITHIUM CARBONATE [Concomitant]
  5. LORAZEPAM [Concomitant]
  6. ZOPICLONE [Concomitant]
  7. OLANZAPINE [Concomitant]

REACTIONS (1)
  - DEATH [None]
